FAERS Safety Report 4417802-8 (Version None)
Quarter: 2004Q3

REPORT INFORMATION
  Report Type: 
  Country: None (occurrence: None)
  Receive Date: 20040803
  Receipt Date: 20040721
  Transmission Date: 20050211
  Serious: Yes (Hospitalization)
  Sender: FDA-Public Use
  Company Number: 2004221577CZ

PATIENT
  Age: 57 Year
  Sex: Male

DRUGS (2)
  1. TOLTERODINE TARTRATE [Suspect]
     Indication: MICTURITION URGENCY
     Dosage: ORAL
     Route: 048
     Dates: start: 20040512
  2. INSULIN [Concomitant]

REACTIONS (2)
  - DIABETIC GANGRENE [None]
  - TOE AMPUTATION [None]
